FAERS Safety Report 25552410 (Version 1)
Quarter: 2025Q3

REPORT INFORMATION
  Report Type: Report from Study
  Country: US (occurrence: US)
  Receive Date: 20250715
  Receipt Date: 20250715
  Transmission Date: 20251020
  Serious: Yes (Other)
  Sender: NOVO NORDISK
  Company Number: US-NOVOPROD-1470704

PATIENT
  Weight: 90.703 kg

DRUGS (1)
  1. LIRAGLUTIDE [Suspect]
     Active Substance: LIRAGLUTIDE
     Indication: Diabetes mellitus

REACTIONS (4)
  - Dehydration [Unknown]
  - Post-acute COVID-19 syndrome [Recovered/Resolved]
  - Loss of consciousness [Unknown]
  - Product use issue [Unknown]
